FAERS Safety Report 7969677-8 (Version None)
Quarter: 2011Q4

REPORT INFORMATION
  Report Type: 
  Country: None (occurrence: None)
  Receive Date: 20111208
  Receipt Date: 20111129
  Transmission Date: 20120403
  Serious: Yes (Other)
  Sender: FDA-Public Use
  Company Number: JPI-P-018468

PATIENT
  Age: 60 Year
  Sex: Female

DRUGS (3)
  1. MULTIPLE UNSPECIFIED MEDICATIONS [Concomitant]
  2. XYREM (500 MILLIGRAM/MILLILITERS, SOLUTION) (SODIUM OXYBATE) [Suspect]
     Indication: NARCOLEPSY
     Dosage: 4.5 GM (2.25 GM,2 IN 1 D),ORAL, ORAL, 12 GM (6 GM, 2 IN 1 D),ORAL
     Route: 048
     Dates: start: 20060309
  3. XYREM (500 MILLIGRAM/MILLILITERS, SOLUTION) (SODIUM OXYBATE) [Suspect]
     Indication: NARCOLEPSY
     Dosage: 4.5 GM (2.25 GM,2 IN 1 D),ORAL, ORAL, 12 GM (6 GM, 2 IN 1 D),ORAL
     Route: 048
     Dates: start: 20110916

REACTIONS (2)
  - FALL [None]
  - PELVIC FRACTURE [None]
